FAERS Safety Report 20559840 (Version 1)
Quarter: 2022Q1

REPORT INFORMATION
  Report Type: Spontaneous
  Country: US (occurrence: US)
  Receive Date: 20220307
  Receipt Date: 20220307
  Transmission Date: 20220423
  Serious: Yes (Other)
  Sender: FDA-Public Use
  Company Number: US-NOVARTISPH-NVSC2022US050053

PATIENT
  Sex: Male

DRUGS (1)
  1. ENTRESTO [Suspect]
     Active Substance: SACUBITRIL\VALSARTAN
     Indication: Left ventricular failure
     Dosage: 50 MG (24/26MG)
     Route: 048

REACTIONS (3)
  - Renal impairment [Recovered/Resolved]
  - Mental disorder [Recovered/Resolved]
  - Hypotension [Recovered/Resolved]
